FAERS Safety Report 8675957 (Version 3)
Quarter: 2012Q4

REPORT INFORMATION
  Report Type: 
  Country: FR (occurrence: FR)
  Receive Date: 20120720
  Receipt Date: 20120912
  Transmission Date: 20130627
  Serious: Yes (Death, Hospitalization, Other)
  Sender: FDA-Public Use
  Company Number: PHHY2012FR061958

PATIENT
  Age: 50 Year
  Sex: Male

DRUGS (1)
  1. AFINITOR [Suspect]
     Indication: RENAL CANCER METASTATIC
     Dosage: 10 mg, daily
     Route: 048
     Dates: start: 201201, end: 20120507

REACTIONS (22)
  - Renal failure acute [Fatal]
  - Blood creatinine increased [Fatal]
  - Vascular compression [Fatal]
  - Hepatic failure [Not Recovered/Not Resolved]
  - Lactic acidosis [Unknown]
  - Asthenia [Unknown]
  - Acute hepatitis B [Unknown]
  - Hepatocellular injury [Recovering/Resolving]
  - Lymphadenopathy [Unknown]
  - Jaundice [Unknown]
  - Hyperbilirubinaemia [Unknown]
  - Fibrosis [Unknown]
  - Melaena [Unknown]
  - Encephalopathy [Unknown]
  - Hyperkalaemia [Unknown]
  - Ammonia increased [Unknown]
  - Coagulation factor V level decreased [Unknown]
  - Faecal vomiting [Unknown]
  - Somnolence [Unknown]
  - Sinus tachycardia [Unknown]
  - Hypothermia [Unknown]
  - Abdominal pain [Unknown]
